FAERS Safety Report 6737616-3 (Version None)
Quarter: 2010Q2

REPORT INFORMATION
  Report Type: 
  Country: None (occurrence: None)
  Receive Date: 20100521
  Receipt Date: 20100521
  Transmission Date: 20101027
  Serious: Yes (Other)
  Sender: FDA-Public Use
  Company Number: None

PATIENT
  Age: 67 Year
  Sex: Female
  Weight: 59.8748 kg

DRUGS (3)
  1. BUPROPION HCL [Suspect]
     Indication: DEPRESSION
     Dosage: 200 MG TWICE A DAY PO
     Route: 048
     Dates: start: 20100320, end: 20100512
  2. BUPROPION HCL [Suspect]
     Indication: FATIGUE
     Dosage: 200 MG TWICE A DAY PO
     Route: 048
     Dates: start: 20100320, end: 20100512
  3. BUPROPION HCL [Suspect]
     Indication: SEASONAL AFFECTIVE DISORDER
     Dosage: 200 MG TWICE A DAY PO
     Route: 048
     Dates: start: 20100320, end: 20100512

REACTIONS (1)
  - PRODUCT SUBSTITUTION ISSUE [None]
